FAERS Safety Report 7745788-7 (Version None)
Quarter: 2011Q3

REPORT INFORMATION
  Report Type: 
  Country: None (occurrence: None)
  Receive Date: 20110830
  Receipt Date: 20110822
  Transmission Date: 20111222
  Serious: Yes (Other)
  Sender: FDA-Public Use
  Company Number: 2011SP029118

PATIENT
  Age: 61 Year
  Sex: Male

DRUGS (2)
  1. CLARITIN REDITABS [Suspect]
     Indication: ECZEMA
     Dosage: 10 MG;QD;PO
     Route: 048
     Dates: start: 20110613, end: 20110620
  2. NERISONA [Concomitant]

REACTIONS (2)
  - ASPARTATE AMINOTRANSFERASE INCREASED [None]
  - HEPATIC FUNCTION ABNORMAL [None]
